FAERS Safety Report 15395446 (Version 1)
Quarter: 2018Q3

REPORT INFORMATION
  Report Type: Spontaneous
  Country: US (occurrence: US)
  Receive Date: 20180911
  Receipt Date: 20180911
  Transmission Date: 20181010
  Serious: Yes (Other)
  Sender: FDA-Public Use
  Company Number: None

PATIENT
  Age: 74 Year
  Sex: Female
  Weight: 75.3 kg

DRUGS (1)
  1. REPATHA [Suspect]
     Active Substance: EVOLOCUMAB
     Indication: TYPE V HYPERLIPIDAEMIA
     Dosage: EVERY 14 DAYS
     Route: 058
     Dates: start: 20180129, end: 20180911

REACTIONS (8)
  - Fatigue [None]
  - Pruritus generalised [None]
  - Tremor [None]
  - Cough [None]
  - Deafness [None]
  - Muscle tightness [None]
  - Oedema [None]
  - Back pain [None]

NARRATIVE: CASE EVENT DATE: 20180911
